FAERS Safety Report 17281904 (Version 1)
Quarter: 2020Q1

REPORT INFORMATION
  Report Type: Spontaneous
  Country: US (occurrence: US)
  Receive Date: 20200117
  Receipt Date: 20200117
  Transmission Date: 20200409
  Serious: No
  Sender: FDA-Public Use
  Company Number: US-GLAXOSMITHKLINE-US2020005780

PATIENT
  Age: 57 Year
  Sex: Male

DRUGS (1)
  1. NICODERM CQ [Suspect]
     Active Substance: NICOTINE
     Indication: SMOKING CESSATION THERAPY
     Dosage: 21 MG
     Dates: start: 20191231

REACTIONS (8)
  - Application site pruritus [Unknown]
  - Application site bruise [Unknown]
  - Application site reaction [Unknown]
  - Application site erythema [Unknown]
  - Application site scab [Unknown]
  - Application site pain [Unknown]
  - Dermatitis contact [Unknown]
  - Application site vesicles [Unknown]

NARRATIVE: CASE EVENT DATE: 20191231
